FAERS Safety Report 15201068 (Version 5)
Quarter: 2018Q4

REPORT INFORMATION
  Report Type: Report from Study
  Country: US (occurrence: US)
  Receive Date: 20180726
  Receipt Date: 20181205
  Transmission Date: 20190204
  Serious: Yes (Hospitalization)
  Sender: FDA-Public Use
  Company Number: US-ROCHE-2158257

PATIENT
  Age: 72 Year
  Sex: Male
  Weight: 94.5 kg

DRUGS (2)
  1. ATEZOLIZUMAB. [Suspect]
     Active Substance: ATEZOLIZUMAB
     Indication: GLIOBLASTOMA MULTIFORME
     Dosage: MOST RECENT DOSE ON 05/JUL/2018
     Route: 042
     Dates: start: 20180620, end: 20180705
  2. TEMOZOLOMIDE. [Suspect]
     Active Substance: TEMOZOLOMIDE
     Indication: GLIOBLASTOMA MULTIFORME
     Route: 048
     Dates: start: 20180620, end: 20180718

REACTIONS (5)
  - Brain oedema [Unknown]
  - Somnolence [Unknown]
  - Brain oedema [Recovered/Resolved]
  - Seizure [Unknown]
  - Urinary tract infection [Unknown]

NARRATIVE: CASE EVENT DATE: 20180718
